FAERS Safety Report 7465810-5 (Version None)
Quarter: 2011Q2

REPORT INFORMATION
  Report Type: 
  Country: None (occurrence: None)
  Receive Date: 20110509
  Receipt Date: 20100405
  Transmission Date: 20111010
  Serious: No
  Sender: FDA-Public Use
  Company Number: US-ALEXION-A201000359

PATIENT
  Sex: Male

DRUGS (23)
  1. TRIAMCINOLONE [Concomitant]
     Dosage: TO LEFT SIDE OF NECK
  2. TYLENOL SINUS                      /00908001/ [Concomitant]
     Dosage: 1-2, QD, PRN
  3. TRIAMCINOLONE [Concomitant]
     Dosage: 1 %, TID DENTAL PASTE
  4. ROPINIROLE HYDROCHLORIDE [Concomitant]
     Dosage: 1 MG, QD, HS
  5. MSM WITH GLUCOSAMINE               /05460301/ [Concomitant]
     Dosage: UNK
     Route: 061
  6. OXYCODONE [Concomitant]
     Dosage: 5/325 MG 1-2 TABS Q4H, PRN
  7. ALIGN [Concomitant]
  8. FOLTX [Concomitant]
     Dosage: UNK
  9. PLAVIX [Concomitant]
     Dosage: 75 MG, QD
  10. ZITHROMAX [Concomitant]
     Dosage: AS INSTRUCTED
  11. CALTRATE + D                       /00944201/ [Concomitant]
     Dosage: 400 IU, UNK
  12. ASPIRIN [Concomitant]
     Dosage: 325 MG, QD
  13. TYLENOL PM                         /01088101/ [Concomitant]
     Dosage: UNK
  14. RAMIPRIL [Concomitant]
     Dosage: 5 MG, QD
  15. HYDROCODONE BITARTRATE AND ACETAMINOPHEN [Concomitant]
     Dosage: 5/500, PRN
  16. PROTONIX [Concomitant]
     Dosage: 40 MG, QD (NOT CURRENTLY TAKING)
  17. GAS RELIEF [Concomitant]
     Dosage: 80 MG, PRN
  18. TYLENOL (CAPLET) [Concomitant]
     Dosage: 325 MG, 2 TABS, PRN
  19. METOPROLOL TARTRATE [Concomitant]
     Dosage: 50 MG, QD
  20. SOLIRIS [Suspect]
     Indication: PAROXYSMAL NOCTURNAL HAEMOGLOBINURIA
     Dosage: 600 MG, QW
     Route: 042
     Dates: start: 20090720, end: 20090810
  21. SOLIRIS [Suspect]
     Dosage: 900 MG, Q2W
     Route: 042
     Dates: start: 20090817, end: 20091026
  22. L-LYSINE                           /00919901/ [Concomitant]
     Dosage: 500 MG, 2 TABLETS, PRN
  23. PENICILLIN [Concomitant]
     Dosage: 500 MG, 1 HR BEFORE DENTAL PROCEDURES

REACTIONS (1)
  - STOMATITIS [None]
